FAERS Safety Report 6800866-1 (Version None)
Quarter: 2010Q2

REPORT INFORMATION
  Report Type: 
  Country: None (occurrence: None)
  Receive Date: 20100629
  Receipt Date: 20100616
  Transmission Date: 20101027
  Serious: Yes (Other)
  Sender: FDA-Public Use
  Company Number: JP-PFIZER INC-2010080151

PATIENT
  Age: 68 Year
  Sex: Male

DRUGS (1)
  1. LOMEFLOXACIN HCL [Suspect]

REACTIONS (1)
  - RENAL FAILURE ACUTE [None]
